FAERS Safety Report 7128731-3 (Version None)
Quarter: 2010Q4

REPORT INFORMATION
  Report Type: 
  Country: None (occurrence: None)
  Receive Date: 20101130
  Receipt Date: 20101122
  Transmission Date: 20110411
  Serious: Yes (Death, Hospitalization)
  Sender: FDA-Public Use
  Company Number: PHHO2010IT17806

PATIENT
  Sex: Male
  Weight: 70 kg

DRUGS (6)
  1. AFINITOR [Suspect]
     Indication: MALIGNANT HEPATOBILIARY NEOPLASM
     Dosage: 10 MG DAILY
     Route: 048
     Dates: start: 20091023, end: 20091025
  2. AFINITOR [Suspect]
     Dosage: NO TREATMENT
     Dates: start: 20091026, end: 20091030
  3. AFINITOR [Suspect]
     Dosage: 10 MG DAILY
     Route: 048
     Dates: start: 20091031, end: 20091031
  4. AFINITOR [Suspect]
     Dosage: 5 MG DAILY
     Route: 048
     Dates: start: 20091101, end: 20091102
  5. AFINITOR [Suspect]
     Dosage: NO TREATMENT
     Dates: start: 20091103, end: 20091105
  6. AFINITOR [Suspect]
     Dosage: 5 MG DAILY
     Route: 048
     Dates: start: 20091106, end: 20091108

REACTIONS (3)
  - GASTROINTESTINAL OBSTRUCTION [None]
  - GASTROINTESTINAL TUBE INSERTION [None]
  - MALIGNANT NEOPLASM PROGRESSION [None]
